FAERS Safety Report 4743512-3 (Version None)
Quarter: 2005Q3

REPORT INFORMATION
  Report Type: 
  Country: None (occurrence: None)
  Receive Date: 20050809
  Receipt Date: 20050727
  Transmission Date: 20060218
  Serious: Yes (Other)
  Sender: FDA-Public Use
  Company Number: 2005108374

PATIENT
  Age: 43 Year
  Sex: Female

DRUGS (1)
  1. DOSTINEX [Suspect]
     Indication: PROLACTINOMA

REACTIONS (3)
  - ARTERY DISSECTION [None]
  - NECK PAIN [None]
  - PARAESTHESIA [None]
